FAERS Safety Report 14264704 (Version 2)
Quarter: 2018Q2

REPORT INFORMATION
  Report Type: Spontaneous
  Country: RO (occurrence: RO)
  Receive Date: 20171208
  Receipt Date: 20180504
  Transmission Date: 20180711
  Serious: Yes (Hospitalization, Other)
  Sender: FDA-Public Use
  Company Number: RO-GLAXOSMITHKLINE-RO2017GSK182676

PATIENT
  Age: 5 Year
  Sex: Female
  Weight: 27 kg

DRUGS (4)
  1. LAMOTRIGINE. [Suspect]
     Active Substance: LAMOTRIGINE
     Dosage: 25 MG, QD, WEEK 1 - 2?25 MG/DAY
     Route: 065
  2. LAMOTRIGINE. [Suspect]
     Active Substance: LAMOTRIGINE
     Dosage: 50 MG, QD
  3. LAMOTRIGINE. [Suspect]
     Active Substance: LAMOTRIGINE
     Dosage: 100 MG, QD
  4. DEPAKINE [Concomitant]
     Active Substance: VALPROATE SODIUM
     Indication: EPILEPSY
     Dosage: 600 MG, QD

REACTIONS (15)
  - Dysphagia [Unknown]
  - Abdominal pain [Unknown]
  - Rash [Unknown]
  - Stevens-Johnson syndrome [Recovered/Resolved]
  - Pruritus [Unknown]
  - Conjunctival hyperaemia [Unknown]
  - Facial pain [Unknown]
  - Rotavirus infection [Unknown]
  - Gastroenteritis norovirus [Unknown]
  - Drug ineffective [Unknown]
  - Vomiting [Unknown]
  - Pyrexia [Unknown]
  - Diarrhoea [Unknown]
  - Salivary hypersecretion [Unknown]
  - Drug interaction [Unknown]
